FAERS Safety Report 12882850 (Version 4)
Quarter: 2016Q4

REPORT INFORMATION
  Report Type: Spontaneous
  Country: JP (occurrence: JP)
  Receive Date: 20161025
  Receipt Date: 20161219
  Transmission Date: 20170207
  Serious: Yes (Hospitalization)
  Sender: FDA-Public Use
  Company Number: JP-SA-2016SA193171

PATIENT
  Age: 67 Year
  Sex: Male
  Weight: 63 kg

DRUGS (25)
  1. ELPLAT [Suspect]
     Active Substance: OXALIPLATIN
     Indication: COLON CANCER
     Route: 041
     Dates: start: 20160603, end: 20160603
  2. VECTIBIX [Suspect]
     Active Substance: PANITUMUMAB
     Indication: COLON CANCER
     Route: 041
     Dates: start: 20160520, end: 20160520
  3. VECTIBIX [Suspect]
     Active Substance: PANITUMUMAB
     Indication: COLON CANCER
     Route: 041
     Dates: start: 20160603, end: 20160603
  4. RESTAMIN CORTIZON [Concomitant]
     Route: 061
     Dates: start: 20160601
  5. OLMETEC [Concomitant]
     Active Substance: OLMESARTAN MEDOXOMIL
     Route: 065
     Dates: start: 20160520
  6. LIDOMEX [Concomitant]
     Active Substance: PREDNISOLONE VALERATE ACETATE
     Route: 061
     Dates: start: 20160522
  7. ELPLAT [Suspect]
     Active Substance: OXALIPLATIN
     Indication: COLON CANCER
     Route: 041
     Dates: start: 20160520, end: 20160520
  8. ALOXI [Concomitant]
     Active Substance: PALONOSETRON HYDROCHLORIDE
     Route: 065
     Dates: start: 20160520, end: 20160603
  9. BAYASPIRIN [Concomitant]
     Active Substance: ASPIRIN
     Dosage: ENTERIC-COATED TABLET
     Route: 065
     Dates: start: 20160520
  10. LOCOID [Concomitant]
     Active Substance: HYDROCORTISONE BUTYRATE
     Route: 061
     Dates: start: 20160520
  11. ELPLAT [Suspect]
     Active Substance: OXALIPLATIN
     Indication: COLON CANCER
     Route: 041
     Dates: start: 20160603, end: 20160603
  12. VECTIBIX [Suspect]
     Active Substance: PANITUMUMAB
     Indication: COLON CANCER
     Route: 041
     Dates: start: 20160603, end: 20160603
  13. TSUMURA DAIKENCHUTO EXTRACT GRANULES [Concomitant]
     Active Substance: HERBALS
     Route: 065
     Dates: start: 20160520
  14. ALESION [Concomitant]
     Active Substance: EPINASTINE HYDROCHLORIDE
     Route: 065
     Dates: start: 20160601, end: 20160602
  15. VECTIBIX [Suspect]
     Active Substance: PANITUMUMAB
     Indication: COLON CANCER
     Route: 041
     Dates: start: 20160520, end: 20160520
  16. EMEND [Concomitant]
     Active Substance: APREPITANT
     Route: 065
     Dates: start: 20160520, end: 20160605
  17. HEPARINOID [Concomitant]
     Active Substance: CHONDROITIN SULFATE (BOVINE)
     Route: 061
     Dates: start: 20160520
  18. LENDORMIN D [Concomitant]
     Active Substance: BROTIZOLAM
     Route: 065
     Dates: start: 20160520
  19. FAMOTIDINE. [Concomitant]
     Active Substance: FAMOTIDINE
     Route: 065
     Dates: start: 20160520
  20. 5-FU [Concomitant]
     Active Substance: FLUOROURACIL
     Route: 040
     Dates: start: 20160520, end: 20160520
  21. 5-FU [Concomitant]
     Active Substance: FLUOROURACIL
     Route: 040
     Dates: start: 20160521, end: 20160521
  22. ELPLAT [Suspect]
     Active Substance: OXALIPLATIN
     Indication: COLON CANCER
     Route: 041
     Dates: start: 20160520, end: 20160520
  23. LEVOFOLINATE [Concomitant]
     Active Substance: LEVOLEUCOVORIN CALCIUM
     Route: 065
     Dates: start: 20160520, end: 20160520
  24. DECADRON [Concomitant]
     Active Substance: DEXAMETHASONE
     Route: 065
     Dates: start: 20160520, end: 20160603
  25. DERMOSOL G [Concomitant]
     Dosage: LOTION (EXCEPT FOR EYE)
     Route: 065
     Dates: start: 20160601

REACTIONS (3)
  - Skin disorder [Unknown]
  - Pruritus [Unknown]
  - Erythema multiforme [Recovering/Resolving]

NARRATIVE: CASE EVENT DATE: 20160527
